FAERS Safety Report 18727646 (Version 5)
Quarter: 2021Q2

REPORT INFORMATION
  Report Type: Report from Study
  Country: MX (occurrence: MX)
  Receive Date: 20210111
  Receipt Date: 20210602
  Transmission Date: 20210717
  Serious: Yes (Hospitalization, Other)
  Sender: FDA-Public Use
  Company Number: MX-TAKEDA-2021TUS000970

PATIENT
  Age: 36 Year
  Sex: Male

DRUGS (4)
  1. MAGNESIUM [Concomitant]
     Active Substance: MAGNESIUM
     Indication: HYPOVITAMINOSIS
     Dosage: UNK
  2. VEDOLIZUMAB [Suspect]
     Active Substance: VEDOLIZUMAB
     Indication: COLITIS ULCERATIVE
     Dosage: 300 MILLIGRAM
     Route: 042
     Dates: start: 20201231
  3. MESALAZINE [Suspect]
     Active Substance: MESALAMINE
     Indication: PRODUCT USED FOR UNKNOWN INDICATION
     Dosage: 1 GRAM, QID
     Route: 065
  4. SELENIUM + ZINC [Concomitant]
     Indication: HYPOVITAMINOSIS
     Dosage: UNK

REACTIONS (7)
  - Incarcerated inguinal hernia [Recovering/Resolving]
  - COVID-19 [Recovering/Resolving]
  - Bone pain [Recovering/Resolving]
  - Myalgia [Recovering/Resolving]
  - Migraine [Recovered/Resolved]
  - Fatigue [Unknown]
  - Inguinal hernia perforation [Recovering/Resolving]

NARRATIVE: CASE EVENT DATE: 20210325
